FAERS Safety Report 16642428 (Version 1)
Quarter: 2019Q3

REPORT INFORMATION
  Report Type: Spontaneous
  Country: CN (occurrence: CN)
  Receive Date: 20190729
  Receipt Date: 20190729
  Transmission Date: 20191004
  Serious: Yes (Other)
  Sender: FDA-Public Use
  Company Number: CN-PFIZER INC-2019319153

PATIENT
  Age: 3 Year
  Sex: Female
  Weight: 13.5 kg

DRUGS (2)
  1. ZITHROMAX [Suspect]
     Active Substance: AZITHROMYCIN DIHYDRATE
     Indication: COUGH
     Dosage: 1.25 DF, 1X/DAY
     Route: 048
     Dates: start: 20190723
  2. ZITHROMAX [Suspect]
     Active Substance: AZITHROMYCIN DIHYDRATE
     Indication: MYCOPLASMA INFECTION
     Dosage: 1.25 DF, 1X/DAY
     Route: 048
     Dates: start: 20190716, end: 20190718

REACTIONS (3)
  - Diarrhoea [Recovering/Resolving]
  - Abdominal pain upper [Not Recovered/Not Resolved]
  - Haematochezia [Recovered/Resolved]

NARRATIVE: CASE EVENT DATE: 20190724
